FAERS Safety Report 8808062 (Version 3)
Quarter: 2012Q4

REPORT INFORMATION
  Report Type: 
  Country: FR (occurrence: FR)
  Receive Date: 20120926
  Receipt Date: 20121019
  Transmission Date: 20130627
  Serious: Yes (Hospitalization)
  Sender: FDA-Public Use
  Company Number: FR-US-EMD SERONO, INC.-7162418

PATIENT
  Sex: Female

DRUGS (9)
  1. GONAL-F [Suspect]
     Indication: IN VITRO FERTILISATION
     Route: 058
     Dates: start: 1997, end: 2002
  2. PERGONAL [Suspect]
     Indication: IN VITRO FERTILISATION
     Dates: start: 1994, end: 1995
  3. METRODIN [Suspect]
     Indication: IN VITRO FERTILISATION
     Route: 030
     Dates: start: 1994, end: 1996
  4. DECAPEPTYL [Suspect]
     Indication: IN VITRO FERTILISATION
     Route: 030
  5. ENANTONE [Suspect]
     Indication: ENDOMETRIOSIS
     Route: 030
     Dates: end: 2002
  6. HUMEGON [Suspect]
     Indication: IN VITRO FERTILISATION
     Route: 030
     Dates: start: 1996, end: 1996
  7. SURGESTONE [Suspect]
     Indication: IN VITRO FERTILISATION
     Route: 048
  8. SURGESTONE [Suspect]
     Indication: ENDOMETRIOSIS
  9. UTROGESTAN [Suspect]
     Indication: IN VITRO FERTILISATION
     Route: 048

REACTIONS (1)
  - Breast cancer [Not Recovered/Not Resolved]
